FAERS Safety Report 6961642-2 (Version None)
Quarter: 2010Q3

REPORT INFORMATION
  Report Type: 
  Country: None (occurrence: None)
  Receive Date: 20100901
  Receipt Date: 20100819
  Transmission Date: 20110219
  Serious: Yes (Hospitalization, Other)
  Sender: FDA-Public Use
  Company Number: PHHY2010JP55564

PATIENT
  Sex: Male

DRUGS (6)
  1. CO-DIOVAN T32564+FCTAB [Suspect]
     Indication: HYPERTENSION
     Dosage: 1 DF, QD
     Route: 048
     Dates: start: 20090611, end: 20091014
  2. AMLODIPINE BESYLATE [Concomitant]
     Indication: HYPERTENSION
     Dosage: 5 MG, UNK
     Route: 048
     Dates: start: 20010129
  3. PLETAL [Concomitant]
     Dosage: 200 MG, UNK
     Route: 048
     Dates: start: 20010129
  4. GLIMICRON [Concomitant]
     Dosage: 40 MG, UNK
     Route: 048
     Dates: start: 20010129
  5. GASTER D [Concomitant]
     Dosage: 20 MG, UNK
     Route: 048
     Dates: start: 20010129
  6. GRAMALIL [Concomitant]
     Dosage: 100 MG, UNK
     Route: 048
     Dates: start: 20090919

REACTIONS (2)
  - BLOOD GLUCOSE INCREASED [None]
  - PNEUMONIA [None]
